FAERS Safety Report 25436152 (Version 1)
Quarter: 2025Q2

REPORT INFORMATION
  Report Type: Report from Study
  Country: DE (occurrence: DE)
  Receive Date: 20250614
  Receipt Date: 20250614
  Transmission Date: 20250716
  Serious: Yes (Life-Threatening, Hospitalization, Other)
  Sender: ABBVIE
  Company Number: DE-ABBVIE-6323275

PATIENT
  Age: 59 Year
  Sex: Female
  Weight: 127 kg

DRUGS (3)
  1. SKYRIZI [Suspect]
     Active Substance: RISANKIZUMAB-RZAA
     Indication: Psoriasis
     Route: 058
     Dates: start: 20191007, end: 20220804
  2. PANTOPRAZOLE [Concomitant]
     Active Substance: PANTOPRAZOLE
     Indication: Product used for unknown indication
     Dosage: DOSE-40
     Dates: start: 20220714
  3. AMIODARONE [Concomitant]
     Active Substance: AMIODARONE
     Indication: Product used for unknown indication

REACTIONS (19)
  - Atrial fibrillation [Unknown]
  - Pulmonary embolism [Unknown]
  - Atrial thrombosis [Unknown]
  - COVID-19 [Unknown]
  - Chilaiditi^s syndrome [Unknown]
  - Spinal osteoarthritis [Unknown]
  - Intervertebral disc protrusion [Unknown]
  - Pancreatic steatosis [Unknown]
  - Spinal osteoarthritis [Unknown]
  - Splenomegaly [Unknown]
  - Syncope [Unknown]
  - Dyspnoea [Unknown]
  - Pancreatic neoplasm [Unknown]
  - Deep vein thrombosis [Unknown]
  - Tachypnoea [Unknown]
  - Cyanosis [Unknown]
  - Oxygen saturation decreased [Unknown]
  - Miosis [Unknown]
  - Atelectasis [Unknown]

NARRATIVE: CASE EVENT DATE: 20220711
